FAERS Safety Report 12101631 (Version 2)
Quarter: 2016Q1

REPORT INFORMATION
  Report Type: Spontaneous
  Country: US (occurrence: US)
  Receive Date: 20160222
  Receipt Date: 20160317
  Transmission Date: 20160526
  Serious: No
  Sender: FDA-Public Use
  Company Number: US-SHIRE-US201601707

PATIENT
  Age: 19 Year
  Sex: Female
  Weight: 69.39 kg

DRUGS (1)
  1. LIALDA [Suspect]
     Active Substance: MESALAMINE
     Indication: COLITIS
     Dosage: 2.4 G (2 X 1.2 G), 2X/DAY:BID
     Route: 048
     Dates: start: 20160205, end: 20160210

REACTIONS (3)
  - Rash [Recovered/Resolved]
  - Inappropriate schedule of drug administration [Recovered/Resolved]
  - Constipation [Unknown]

NARRATIVE: CASE EVENT DATE: 201602
